FAERS Safety Report 9632844 (Version 1)
Quarter: 2013Q4

REPORT INFORMATION
  Report Type: Spontaneous
  Country: ZA (occurrence: ZA)
  Receive Date: 20131018
  Receipt Date: 20131018
  Transmission Date: 20140711
  Serious: Yes (Other)
  Sender: FDA-Public Use
  Company Number: ZA-B.I. PHARMACEUTICALS,INC./RIDGEFIELD-2013-BI-31780ZA

PATIENT
  Age: 58 Year
  Sex: Male
  Weight: 105 kg

DRUGS (6)
  1. PRITOR [Suspect]
     Indication: HYPERTENSION
     Dosage: 40 MG
     Route: 048
     Dates: start: 20120706, end: 20120712
  2. MICARDIS [Suspect]
     Indication: HYPERTENSION
     Dosage: 40 MG
     Route: 048
     Dates: start: 20120801
  3. EZETROL [Concomitant]
  4. VANCOMYCIN [Concomitant]
  5. ZYVOXID [Concomitant]
  6. ECOTRIN [Concomitant]

REACTIONS (4)
  - Depression suicidal [Recovered/Resolved]
  - Back pain [Not Recovered/Not Resolved]
  - Pain in extremity [Not Recovered/Not Resolved]
  - Rash [Not Recovered/Not Resolved]
